FAERS Safety Report 15331854 (Version 1)
Quarter: 2018Q4

REPORT INFORMATION
  Report Type: Spontaneous
  Country: DE (occurrence: DE)
  Receive Date: 20180829
  Receipt Date: 20180829
  Transmission Date: 20190204
  Serious: Yes (Hospitalization, Other)
  Sender: FDA-Public Use
  Company Number: DE-PFIZER INC-2018343218

PATIENT
  Age: 53 Year
  Sex: Female

DRUGS (10)
  1. CHLORALDURAT [Suspect]
     Active Substance: CHLORAL HYDRATE
     Dosage: 500 MG, 1X/DAY
     Route: 048
  2. RESTEX [Suspect]
     Active Substance: BENSERAZIDE\LEVODOPA
     Dosage: 100 MG, 1X/DAY (TAKING FOR 2 YEARS)
     Route: 048
  3. DOMINAL (PROTHIPENDYL HYDROCHLORIDE) [Suspect]
     Active Substance: PROTHIPENDYL HYDROCHLORIDE
     Dosage: 80 MG, 1X/DAY
     Route: 048
     Dates: start: 20180208, end: 20180215
  4. L-THYROXINE [Concomitant]
     Active Substance: LEVOTHYROXINE
     Dosage: 50 UG, 1X/DAY (TAKING FOR YEARS)
     Route: 048
  5. CIRCADIN [Concomitant]
     Active Substance: MELATONIN
     Dosage: 2 MG, 1X/DAY
     Route: 048
     Dates: start: 20180208, end: 20180228
  6. TORASEMID [Concomitant]
     Active Substance: TORSEMIDE
     Dosage: 5 MG, 1X/DAY (TAKING FOR YEARS)
     Route: 048
  7. VENLAFAXINE HCL [Suspect]
     Active Substance: VENLAFAXINE HYDROCHLORIDE
     Dosage: 300 MG, 1X/DAY
     Route: 048
     Dates: start: 20180217
  8. VENLAFAXINE HCL [Suspect]
     Active Substance: VENLAFAXINE HYDROCHLORIDE
     Dosage: 225 MG ONCE A DAY
     Route: 048
     Dates: end: 20180216
  9. PROMETHAZINE [Suspect]
     Active Substance: PROMETHAZINE\PROMETHAZINE HYDROCHLORIDE
     Dosage: 50 MG, 1X/DAY (SINGLE DOSE)
     Route: 048
     Dates: start: 20180215, end: 20180215
  10. LERCANIDIPINE HCL [Concomitant]
     Active Substance: LERCANIDIPINE HYDROCHLORIDE
     Dosage: 10 MG, 1X/DAY (TAKING FOR YEARS)
     Route: 048

REACTIONS (5)
  - Helplessness [Recovered/Resolved]
  - Disturbance in attention [Recovered/Resolved]
  - Disorientation [Recovered/Resolved]
  - Delirium [Recovered/Resolved]
  - Restlessness [Recovered/Resolved]

NARRATIVE: CASE EVENT DATE: 20180215
